FAERS Safety Report 18720745 (Version 2)
Quarter: 2021Q1

REPORT INFORMATION
  Report Type: Report from Study
  Country: US (occurrence: US)
  Receive Date: 20210108
  Receipt Date: 20210121
  Transmission Date: 20210419
  Serious: Yes (Hospitalization, Other)
  Sender: FDA-Public Use
  Company Number: US-GILEAD-2021-0512124

PATIENT
  Age: 52 Year
  Sex: Female
  Weight: 110.4 kg

DRUGS (46)
  1. REMDESIVIR. [Suspect]
     Active Substance: REMDESIVIR
     Dosage: 100 MG
     Route: 042
     Dates: start: 20201215, end: 20201215
  2. OXYGEN. [Concomitant]
     Active Substance: OXYGEN
     Dosage: 70 %
     Route: 007
     Dates: start: 20201217
  3. OXYGEN. [Concomitant]
     Active Substance: OXYGEN
     Dosage: 50 UNK
     Route: 007
     Dates: start: 20201223
  4. OXYGEN. [Concomitant]
     Active Substance: OXYGEN
     Dosage: 45 UNK
     Route: 007
     Dates: start: 20201225
  5. ONDANSETRON [Concomitant]
     Active Substance: ONDANSETRON
     Indication: NAUSEA
     Dosage: 4 MG
     Dates: start: 20201214, end: 20201214
  6. NOREPINEPHRINE. [Concomitant]
     Active Substance: NOREPINEPHRINE
     Indication: HYPOTENSION
     Dosage: UNK
     Dates: start: 20201215, end: 20201223
  7. OXYGEN. [Concomitant]
     Active Substance: OXYGEN
     Dosage: 40 L/MIN
     Route: 055
     Dates: start: 20201227
  8. OXYGEN. [Concomitant]
     Active Substance: OXYGEN
     Dosage: 3 L/MIN
     Route: 055
     Dates: start: 20201231
  9. POLYETHYLENE GLYCOL [MACROGOL] [Concomitant]
     Active Substance: POLYETHYLENE GLYCOLS
     Dosage: 17 G
     Dates: start: 20201219, end: 20201227
  10. CEFTRIAXONE. [Concomitant]
     Active Substance: CEFTRIAXONE
     Indication: PNEUMONIA
     Dosage: 2 G
     Dates: start: 20201229, end: 20201229
  11. TOCILIZUMAB. [Suspect]
     Active Substance: TOCILIZUMAB
     Indication: COVID-19 PNEUMONIA
     Dosage: 100 ML
     Route: 042
     Dates: start: 20201216
  12. ALBUTEROL [SALBUTAMOL] [Concomitant]
     Active Substance: ALBUTEROL
     Dosage: 2.5 MG, QD
     Dates: start: 20201214, end: 20201214
  13. INSULIN [Concomitant]
     Active Substance: INSULIN NOS
     Indication: DIABETES MELLITUS
     Dosage: 1 U
     Dates: start: 20201219, end: 20201220
  14. FLUCONAZOLE. [Concomitant]
     Active Substance: FLUCONAZOLE
     Dosage: 40 MG
     Dates: start: 20201231, end: 20210101
  15. REMDESIVIR. [Suspect]
     Active Substance: REMDESIVIR
     Dosage: 200 MG
     Route: 042
     Dates: start: 20201214, end: 20201214
  16. OXYGEN. [Concomitant]
     Active Substance: OXYGEN
     Dosage: 40 L/MIN
     Route: 055
     Dates: start: 20201228
  17. OXYGEN. [Concomitant]
     Active Substance: OXYGEN
     Dosage: 45 UNK
     Route: 007
     Dates: start: 20201224
  18. OXYGEN. [Concomitant]
     Active Substance: OXYGEN
     Dosage: 3 L/MIN
     Route: 055
     Dates: start: 20210101
  19. ENOXAPARIN [Concomitant]
     Active Substance: ENOXAPARIN
     Dosage: UNK MG
     Dates: start: 20201214, end: 20201215
  20. ROCURONIUM [Concomitant]
     Active Substance: ROCURONIUM BROMIDE
     Dosage: UNK
     Dates: start: 20201215, end: 20201215
  21. REMDESIVIR. [Suspect]
     Active Substance: REMDESIVIR
     Indication: COVID-19 PNEUMONIA
     Dosage: 250 ML
     Route: 042
     Dates: start: 20201216
  22. OXYGEN. [Concomitant]
     Active Substance: OXYGEN
     Dosage: 70 UNK
     Route: 007
     Dates: start: 20201219
  23. OXYGEN. [Concomitant]
     Active Substance: OXYGEN
     Dosage: 65 UNK
     Route: 007
     Dates: start: 20201220
  24. OXYGEN. [Concomitant]
     Active Substance: OXYGEN
     Dosage: 40 UNK
     Route: 007
     Dates: start: 20201226
  25. OXYGEN. [Concomitant]
     Active Substance: OXYGEN
     Dosage: 80 UNK
     Route: 007
     Dates: start: 20201216
  26. DEXMEDETOMIDINE. [Concomitant]
     Active Substance: DEXMEDETOMIDINE
     Indication: SEDATIVE THERAPY
     Dosage: UNK
     Dates: start: 20201215, end: 20201223
  27. PIPERACILLIN/TAZOBACTAM [Concomitant]
     Active Substance: PIPERACILLIN SODIUM\TAZOBACTAM SODIUM
     Dosage: 4.5 G
     Dates: start: 20210103, end: 20210106
  28. OXYGEN. [Concomitant]
     Active Substance: OXYGEN
     Dosage: 65 UNK
     Route: 007
     Dates: start: 20201221
  29. OXYGEN. [Concomitant]
     Active Substance: OXYGEN
     Dosage: 4 L/MIN
     Route: 055
     Dates: start: 20201230
  30. FENTANYL. [Concomitant]
     Active Substance: FENTANYL
     Indication: PAIN
     Dosage: 75
     Dates: start: 20201215, end: 20201224
  31. CEFAZOLIN [Concomitant]
     Active Substance: CEFAZOLIN
     Indication: PNEUMONIA
     Dosage: 2 G
     Dates: start: 20201222, end: 20201228
  32. CLONAZEPAM. [Concomitant]
     Active Substance: CLONAZEPAM
     Indication: AGITATION
     Dosage: 1 MG .33
     Dates: start: 20201221, end: 20201226
  33. FUROSEMIDE. [Concomitant]
     Active Substance: FUROSEMIDE
     Dosage: 20 MG .5
     Dates: start: 20201221, end: 20201221
  34. METRONIDAZOLE. [Concomitant]
     Active Substance: METRONIDAZOLE
     Dosage: 500 MG
     Dates: start: 20201231, end: 20210103
  35. DEXAMETHASONE. [Concomitant]
     Active Substance: DEXAMETHASONE
     Dosage: 6 MG, QD
     Dates: start: 20201214, end: 20201223
  36. MIDAZOLAM. [Concomitant]
     Active Substance: MIDAZOLAM
     Indication: SEDATIVE THERAPY
     Dosage: 10 MG
     Dates: start: 20201215, end: 20201223
  37. INSULIN LISPRO [Concomitant]
     Active Substance: INSULIN LISPRO
     Indication: DIABETES MELLITUS
     Dosage: 2 U
     Dates: start: 20201216, end: 20201216
  38. CEFEPIME [Concomitant]
     Active Substance: CEFEPIME HYDROCHLORIDE
     Indication: PNEUMONIA
     Dosage: 2 G
     Dates: start: 20201230, end: 20210102
  39. ALTEPLASE. [Concomitant]
     Active Substance: ALTEPLASE
     Dosage: 1 MG
     Route: 042
     Dates: start: 20201230, end: 20201230
  40. OXYGEN. [Concomitant]
     Active Substance: OXYGEN
     Dosage: 100 UNK
     Route: 007
     Dates: start: 20201216
  41. OXYGEN. [Concomitant]
     Active Substance: OXYGEN
     Dosage: 70 UNK
     Route: 007
     Dates: start: 20201218
  42. OXYGEN. [Concomitant]
     Active Substance: OXYGEN
     Dosage: 4 L/MIN
     Route: 055
     Dates: start: 20201229
  43. FENTANYL. [Concomitant]
     Active Substance: FENTANYL
     Indication: SEDATIVE THERAPY
  44. FAMOTIDINE. [Concomitant]
     Active Substance: FAMOTIDINE
     Dosage: UNK
     Dates: start: 20201215, end: 20201228
  45. METOCLOPRAMIDE. [Concomitant]
     Active Substance: METOCLOPRAMIDE
     Indication: NAUSEA
     Dosage: 5 MG
     Dates: start: 20201216, end: 20201227
  46. VANCOMYCIN [Concomitant]
     Active Substance: VANCOMYCIN
     Indication: PNEUMONIA
     Dosage: 200 MG
     Dates: start: 20201221, end: 20201223

REACTIONS (1)
  - Retroperitoneal haemorrhage [Recovered/Resolved]

NARRATIVE: CASE EVENT DATE: 20201231
